FAERS Safety Report 20869471 (Version 3)
Quarter: 2022Q3

REPORT INFORMATION
  Report Type: Spontaneous
  Country: US (occurrence: US)
  Receive Date: 20220524
  Receipt Date: 20220823
  Transmission Date: 20221026
  Serious: No
  Sender: FDA-Public Use
  Company Number: US-GILEAD-2022-0582852

PATIENT
  Age: 56 Year
  Sex: Male

DRUGS (2)
  1. TRUVADA [Suspect]
     Active Substance: EMTRICITABINE\TENOFOVIR DISOPROXIL FUMARATE
     Indication: HIV infection
     Dosage: UNK
     Route: 048
     Dates: start: 2008, end: 2021
  2. TRUVADA [Suspect]
     Active Substance: EMTRICITABINE\TENOFOVIR DISOPROXIL FUMARATE
     Dosage: UNK
     Route: 048
     Dates: start: 200409, end: 201809

REACTIONS (7)
  - Tooth loss [Not Recovered/Not Resolved]
  - Bone density abnormal [Not Recovered/Not Resolved]
  - Emotional distress [Unknown]
  - Anxiety [Unknown]
  - Anhedonia [Unknown]
  - Pain [Unknown]
  - Bone density decreased [Unknown]

NARRATIVE: CASE EVENT DATE: 20130101
